FAERS Safety Report 6210896-9 (Version None)
Quarter: 2009Q2

REPORT INFORMATION
  Report Type: 
  Country: None (occurrence: None)
  Receive Date: 20090601
  Receipt Date: 20090522
  Transmission Date: 20091009
  Serious: Yes (Other)
  Sender: FDA-Public Use
  Company Number: BR-SANOFI-SYNTHELABO-A01200905369

PATIENT
  Sex: Male

DRUGS (5)
  1. DIGOXIN [Concomitant]
     Indication: CARDIAC DISORDER
     Dosage: UNK
     Route: 065
  2. PERINDOPRIL ERBUMINE [Concomitant]
     Indication: CARDIAC DISORDER
     Dosage: UNK
     Route: 065
  3. BISOPROLOL FUMARATE [Concomitant]
     Indication: CARDIAC DISORDER
     Dosage: UNK
     Route: 065
  4. XATRAL [Suspect]
     Indication: BENIGN PROSTATIC HYPERPLASIA
     Dosage: UNK
     Route: 048
     Dates: end: 20080601
  5. XATRAL [Suspect]
     Route: 048
     Dates: start: 20080601, end: 20090519

REACTIONS (2)
  - CARDIAC FAILURE [None]
  - HYPOTENSION [None]
